FAERS Safety Report 9931284 (Version 2)
Quarter: 2014Q1

REPORT INFORMATION
  Report Type: Spontaneous
  Country: JP (occurrence: JP)
  Receive Date: 20140228
  Receipt Date: 20140303
  Transmission Date: 20141002
  Serious: No
  Sender: FDA-Public Use
  Company Number: JP-009507513-1402JPN012129

PATIENT
  Age: 66 Year
  Sex: Female

DRUGS (4)
  1. AVASTIN (BEVACIZUMAB) [Concomitant]
  2. IRINOTECAN HYDROCHLORIDE [Concomitant]
  3. TS-1 [Concomitant]
  4. FOSAPREPITANT DIMEGLUMINE [Suspect]
     Indication: PROPHYLAXIS OF NAUSEA AND VOMITING
     Dosage: 150 MG, ONCE A DAY
     Route: 041
     Dates: start: 20140203, end: 20140203

REACTIONS (1)
  - Injection site pain [Recovering/Resolving]
